FAERS Safety Report 5075969-5 (Version None)
Quarter: 2006Q3

REPORT INFORMATION
  Report Type: 
  Country: None (occurrence: None)
  Receive Date: 20060808
  Receipt Date: 20060808
  Transmission Date: 20061208
  Serious: Yes (Hospitalization)
  Sender: FDA-Public Use
  Company Number: None

PATIENT
  Age: 80 Year
  Sex: Male
  Weight: 36.2 kg

DRUGS (2)
  1. CLOPIDOGREL [Suspect]
     Indication: CORONARY ANGIOPLASTY
     Dosage: 75 MG QD PO
     Route: 048
  2. CLOPIDOGREL [Suspect]
     Indication: CORONARY ARTERY DISEASE
     Dosage: 75 MG QD PO
     Route: 048

REACTIONS (13)
  - CELLULITIS [None]
  - COLON ADENOMA [None]
  - DIARRHOEA [None]
  - DIVERTICULITIS [None]
  - GASTROINTESTINAL DYSPLASIA [None]
  - GASTROINTESTINAL HAEMORRHAGE [None]
  - HAEMATOCHEZIA [None]
  - HYPERTENSION [None]
  - HYPOKALAEMIA [None]
  - HYPOTENSION [None]
  - POSTOPERATIVE THROMBOSIS [None]
  - STAPHYLOCOCCAL BACTERAEMIA [None]
  - TRANSIENT ISCHAEMIC ATTACK [None]
